FAERS Safety Report 5975045-0 (Version None)
Quarter: 2008Q4

REPORT INFORMATION
  Report Type: 
  Country: None (occurrence: None)
  Receive Date: 20081202
  Receipt Date: 20081121
  Transmission Date: 20090506
  Serious: Yes (Disabling)
  Sender: FDA-Public Use
  Company Number: US-ALLERGAN-0808579US

PATIENT
  Sex: Female

DRUGS (59)
  1. BOTOX [Suspect]
     Indication: SKIN WRINKLING
     Dosage: 22.5 UNITS, SINGLE
     Route: 030
     Dates: start: 20080225, end: 20080225
  2. BOTOX [Suspect]
     Dosage: 20 UNITS, SINGLE
     Route: 030
     Dates: start: 20040721, end: 20040721
  3. BOTOX [Suspect]
     Indication: BLEPHAROSPASM
     Dosage: 20 UNITS, SINGLE
     Route: 030
     Dates: start: 20050602, end: 20050602
  4. BOTOX [Suspect]
     Dosage: 20 UNITS, SINGLE
     Route: 030
     Dates: start: 20050929, end: 20050929
  5. BOTOX [Suspect]
     Dosage: 20 UNITS, SINGLE
     Route: 030
     Dates: start: 20060105, end: 20060105
  6. BOTOX [Suspect]
     Dosage: 20 UNITS, SINGLE
     Route: 030
     Dates: start: 20060915, end: 20060915
  7. BOTOX [Suspect]
     Dosage: 20 UNITS, SINGLE
     Route: 030
     Dates: start: 20071004, end: 20071004
  8. TOPROL-XL [Concomitant]
  9. CRESTOR [Concomitant]
  10. KLONOPIN [Concomitant]
  11. NEXIUM [Concomitant]
  12. ZOLOFT [Concomitant]
  13. AMBIEN [Concomitant]
  14. SKELAXIN [Concomitant]
  15. RESTYLANE [Concomitant]
  16. LIDOCAINE [Concomitant]
     Indication: NERVE BLOCK
     Dosage: 1.5 ML, SINGLE, INTRAORAL ROUTE
     Dates: start: 20060105, end: 20060105
  17. LIDOCAINE [Concomitant]
     Indication: ANAESTHESIA
     Dosage: SINGLE, INTRAORAL ROUTE
     Dates: start: 20060119, end: 20060119
  18. LIDOCAINE [Concomitant]
     Dosage: UNK, SINGLE
     Dates: start: 20071004, end: 20071004
  19. RESTYLANE [Concomitant]
  20. JUVEDERM ULTRA [Concomitant]
  21. LODINE XL [Concomitant]
  22. TETRACYCLINE [Concomitant]
     Indication: ROSACEA
     Dosage: 500 MG, BID
  23. TETRACYCLINE [Concomitant]
     Dosage: 500 MG, QD
  24. FINACEA [Concomitant]
     Indication: ROSACEA
     Dosage: UNK, BID
     Route: 061
  25. AVAR CLEANSER [Concomitant]
     Indication: ROSACEA
     Dosage: UNK, QD
     Route: 061
  26. TRAZODONE HCL [Concomitant]
  27. RISPERDAL [Concomitant]
  28. NASONEX [Concomitant]
  29. LIPITOR [Concomitant]
  30. VALIUM [Concomitant]
     Dosage: 1/2, PRN
  31. REFRESH P.M. [Concomitant]
     Dosage: UNK, QHS
     Route: 047
  32. SYSTANE [Concomitant]
     Route: 047
  33. FML [Concomitant]
     Dosage: UNK, QID
     Route: 047
  34. RESTASIS [Concomitant]
     Dosage: UNK, BID
     Route: 047
  35. DOXYCYCLINE [Concomitant]
     Dosage: 50 MG, QD
     Route: 048
  36. FML-S SUSPENSION [Concomitant]
     Indication: DRY EYE
     Dosage: 1 GTT, QID
     Route: 047
  37. FLAXSEED OIL [Concomitant]
     Indication: DRY EYE
  38. ALREX [Concomitant]
     Dosage: 3-4 PER DAY PRN
     Route: 047
  39. LOTEMAX [Concomitant]
     Dosage: UNK, QID
     Route: 047
  40. PERCOCET [Concomitant]
  41. PROVIGIL [Concomitant]
  42. PREVIDENT [Concomitant]
  43. ASPIRIN [Concomitant]
  44. CORTISONE ACETATE TAB [Concomitant]
  45. PEPCID [Concomitant]
  46. TAVIST [Concomitant]
  47. TYLENOL W/ CODEINE NO. 3 [Concomitant]
  48. AUGMENTIN '125' [Concomitant]
  49. ZYRTEC-D 12 HOUR [Concomitant]
  50. AMOXIL [Concomitant]
  51. ZETIA [Concomitant]
  52. BENTYL [Concomitant]
  53. DIAZEPAM [Concomitant]
  54. MEDROL [Concomitant]
     Dosage: DOSE PACK
  55. WELCHOL [Concomitant]
  56. FLU VACCNE [Concomitant]
  57. REQUIP [Concomitant]
  58. PNEUMONIA VACCINATION [Concomitant]
  59. ASTELIN [Concomitant]

REACTIONS (3)
  - DIPLOPIA [None]
  - EYELID PTOSIS [None]
  - VISION BLURRED [None]
